FAERS Safety Report 6260025-0 (Version None)
Quarter: 2009Q3

REPORT INFORMATION
  Report Type: 
  Country: None (occurrence: None)
  Receive Date: 20090708
  Receipt Date: 20090626
  Transmission Date: 20100115
  Serious: Yes (Other)
  Sender: FDA-Public Use
  Company Number: AU-ELI_LILLY_AND_COMPANY-AU200904004302

PATIENT
  Sex: Female

DRUGS (15)
  1. CYMBALTA [Suspect]
     Indication: AGITATED DEPRESSION
     Dosage: UNK, UNKNOWN
     Route: 065
     Dates: start: 20090305, end: 20090404
  2. AMOXIL [Concomitant]
     Indication: BRONCHITIS
     Dosage: 500 MG, 1 TID MDU
  3. ASPIRIN [Concomitant]
     Indication: ANGINA PECTORIS
     Dosage: 100 MG, 1 MANE CC
  4. CADUET [Concomitant]
     Indication: HYPERLIPIDAEMIA
     Dosage: 5MG/80MG 1 NOCTE
  5. CATAPRES /00171102/ [Concomitant]
     Indication: HOT FLUSH
     Dosage: 100 UG, 1 TID
  6. DUCENE [Concomitant]
     Dosage: 5 MG, UNK1/2 MANE 1 NOCTE
  7. EFUDIX [Concomitant]
     Indication: BASAL CELL CARCINOMA
     Dosage: APPLY MDU
  8. IBILEX [Concomitant]
     Dosage: 500 MG, EACH EVENING
  9. MICARDIS [Concomitant]
     Indication: HYPERTENSION
     Dosage: 80 MG, 1 MANE
  10. OROXINE [Concomitant]
     Indication: HYPOTHYROIDISM
     Dosage: 100 UG, DAILY (1/D)
  11. OROXINE [Concomitant]
     Dosage: 50 UG, 1 ALT DAYS
  12. ACETAMINOPHEN [Concomitant]
     Indication: OSTEOARTHRITIS
     Dosage: 665 MG, 2TID PRN
  13. QVAR 40 [Concomitant]
     Indication: ASTHMA
     Dosage: 100 UG, 2/D
  14. VENTOLIN [Concomitant]
     Dosage: 100 UG, 1-2 PUFFS EVERY 4 HRS
  15. ZOLOFT [Concomitant]
     Dosage: 50 MG, 1 MANE

REACTIONS (2)
  - HEPATITIS [None]
  - TYPE 2 DIABETES MELLITUS [None]
